FAERS Safety Report 7725068-6 (Version None)
Quarter: 2011Q3

REPORT INFORMATION
  Report Type: 
  Country: None (occurrence: None)
  Receive Date: 20110901
  Receipt Date: 20110829
  Transmission Date: 20111222
  Serious: Yes (Other)
  Sender: FDA-Public Use
  Company Number: US-PFIZER INC-2011071195

PATIENT
  Sex: Male
  Weight: 73.5 kg

DRUGS (3)
  1. CHANTIX [Suspect]
     Indication: SMOKING CESSATION THERAPY
     Dosage: 0.5 MG, 1X/DAY
     Route: 048
     Dates: start: 20110321, end: 20110301
  2. CHANTIX [Suspect]
     Dosage: 0.5 MG, 2X/DAY
     Dates: start: 20110301, end: 20110101
  3. CHANTIX [Suspect]
     Dosage: UNK
     Dates: start: 20110101, end: 20110801

REACTIONS (1)
  - PANCREATITIS [None]
